FAERS Safety Report 7211801-9 (Version None)
Quarter: 2011Q1

REPORT INFORMATION
  Report Type: 
  Country: None (occurrence: None)
  Receive Date: 20110105
  Receipt Date: 20101207
  Transmission Date: 20110831
  Serious: No
  Sender: FDA-Public Use
  Company Number: US-BAYER-2010-008291

PATIENT

DRUGS (1)
  1. MAGNEVIST [Suspect]

REACTIONS (3)
  - NAUSEA [None]
  - SNEEZING [None]
  - VOMITING [None]
